FAERS Safety Report 12305570 (Version 1)
Quarter: 2016Q2

REPORT INFORMATION
  Report Type: Spontaneous
  Country: US (occurrence: None)
  Receive Date: 20160425
  Receipt Date: 20160425
  Transmission Date: 20160815
  Serious: No
  Sender: FDA-Public Use
  Company Number: None

PATIENT
  Age: 34 Year
  Sex: Female

DRUGS (1)
  1. COPAXONE [Suspect]
     Active Substance: GLATIRAMER ACETATE
     Indication: MULTIPLE SCLEROSIS
     Route: 058
     Dates: start: 20151021

REACTIONS (8)
  - Anxiety [None]
  - Dizziness [None]
  - Palpitations [None]
  - Flushing [None]
  - Pain [None]
  - Injection site pain [None]
  - Asthenia [None]
  - Joint swelling [None]

NARRATIVE: CASE EVENT DATE: 201510
